FAERS Safety Report 12179063 (Version 1)
Quarter: 2016Q1

REPORT INFORMATION
  Report Type: Spontaneous
  Country: HU (occurrence: HU)
  Receive Date: 20160315
  Receipt Date: 20160315
  Transmission Date: 20160526
  Serious: Yes (Other)
  Sender: FDA-Public Use
  Company Number: CHNY2016HU000450

PATIENT
  Age: 35 Year
  Sex: Male

DRUGS (1)
  1. VOLTAREN [Suspect]
     Active Substance: DICLOFENAC SODIUM
     Indication: PAIN
     Dosage: 25 MG, ONCE/SINGLE
     Route: 048
     Dates: start: 20160213, end: 20160213

REACTIONS (5)
  - Generalised oedema [Recovered/Resolved]
  - Chills [Recovered/Resolved]
  - Pruritus generalised [Recovered/Resolved]
  - Flushing [Recovered/Resolved]
  - Alanine aminotransferase increased [Unknown]

NARRATIVE: CASE EVENT DATE: 20160213
